FAERS Safety Report 9175143 (Version 2)
Quarter: 2014Q1

REPORT INFORMATION
  Report Type: Spontaneous
  Country: US (occurrence: US)
  Receive Date: 20130320
  Receipt Date: 20140122
  Transmission Date: 20141002
  Serious: Yes (Other)
  Sender: FDA-Public Use
  Company Number: US-BAYER-2013-034248

PATIENT
  Age: 25 Year
  Sex: Female

DRUGS (5)
  1. YAZ [Suspect]
  2. YASMIN [Suspect]
  3. OCELLA [Suspect]
  4. LEVAQUIN [Concomitant]
     Dosage: UNK
     Route: 048
     Dates: start: 20081127, end: 20081202
  5. VICODIN [Concomitant]

REACTIONS (4)
  - Cholecystectomy [None]
  - Cholecystitis acute [None]
  - Injury [None]
  - Emotional distress [None]
